FAERS Safety Report 10107490 (Version 2)
Quarter: 2014Q2

REPORT INFORMATION
  Report Type: Spontaneous
  Country: US (occurrence: US)
  Receive Date: 20140424
  Receipt Date: 20140520
  Transmission Date: 20141212
  Serious: No
  Sender: FDA-Public Use
  Company Number: US-US-EMD SERONO, INC.-7283652

PATIENT
  Age: 58 Year
  Sex: Female

DRUGS (2)
  1. REBIF [Suspect]
     Indication: PRODUCT USED FOR UNKNOWN INDICATION
     Dates: start: 201401
  2. CITALOPRAM [Concomitant]
     Indication: DEPRESSION

REACTIONS (2)
  - Lumbar spinal stenosis [Unknown]
  - Depression [Not Recovered/Not Resolved]
